FAERS Safety Report 8134915-8 (Version None)
Quarter: 2012Q1

REPORT INFORMATION
  Report Type: 
  Country: None (occurrence: None)
  Receive Date: 20120214
  Receipt Date: 20120211
  Transmission Date: 20120608
  Serious: No
  Sender: FDA-Public Use
  Company Number: US-PFIZER INC-2011275210

PATIENT
  Sex: Female
  Weight: 60.317 kg

DRUGS (3)
  1. TIKOSYN [Suspect]
     Indication: ARRHYTHMIA
     Dosage: 250 UG, 2X/DAY
     Route: 048
     Dates: start: 20111021
  2. TIKOSYN [Suspect]
     Indication: ATRIAL FIBRILLATION
  3. COUMADIN [Concomitant]
     Dosage: UNK

REACTIONS (7)
  - BLOOD PRESSURE FLUCTUATION [None]
  - BONE PAIN [None]
  - HOT FLUSH [None]
  - ARTHRALGIA [None]
  - PAIN [None]
  - BACK PAIN [None]
  - CHEST PAIN [None]
